FAERS Safety Report 23854659 (Version 1)
Quarter: 2024Q2

REPORT INFORMATION
  Report Type: Spontaneous
  Country: US (occurrence: None)
  Receive Date: 20240514
  Receipt Date: 20240514
  Transmission Date: 20240715
  Serious: Yes (Other)
  Sender: FDA-Public Use
  Company Number: None

PATIENT
  Age: 54 Year
  Sex: Female
  Weight: 67.5 kg

DRUGS (6)
  1. PACLITAXEL [Suspect]
     Active Substance: PACLITAXEL
     Indication: Chemotherapy
     Dates: start: 20240213, end: 20240507
  2. METOPROLOL [Concomitant]
     Active Substance: METOPROLOL
  3. AMLODIPINE [Concomitant]
     Active Substance: AMLODIPINE BESYLATE
  4. ROSUVASTATIN [Concomitant]
     Active Substance: ROSUVASTATIN
  5. AZITHROMYCIN [Concomitant]
     Active Substance: AZITHROMYCIN
  6. NEULASTA [Concomitant]
     Active Substance: PEGFILGRASTIM

REACTIONS (3)
  - Chills [None]
  - Hypertension [None]
  - Infusion related reaction [None]

NARRATIVE: CASE EVENT DATE: 20240213
